FAERS Safety Report 6806160-7 (Version None)
Quarter: 2010Q2

REPORT INFORMATION
  Report Type: 
  Country: None (occurrence: None)
  Receive Date: 20100629
  Receipt Date: 20080219
  Transmission Date: 20101027
  Serious: No
  Sender: FDA-Public Use
  Company Number: US-PFIZER INC-2007105774

PATIENT
  Sex: Male

DRUGS (1)
  1. ZYVOX [Suspect]
     Indication: STAPHYLOCOCCAL INFECTION
     Dates: start: 20070801

REACTIONS (5)
  - BURNING SENSATION [None]
  - DRUG INEFFECTIVE [None]
  - DRUG INTOLERANCE [None]
  - FEELING ABNORMAL [None]
  - TENSION [None]
